FAERS Safety Report 19037244 (Version 1)
Quarter: 2021Q1

REPORT INFORMATION
  Report Type: Spontaneous
  Country: US (occurrence: US)
  Receive Date: 20210322
  Receipt Date: 20210322
  Transmission Date: 20210420
  Serious: No
  Sender: FDA-Public Use
  Company Number: US-ITALFARMACO SPA-2108263

PATIENT
  Age: 73 Year
  Sex: Female

DRUGS (1)
  1. TIGLUTIK [Suspect]
     Active Substance: RILUZOLE
     Dates: start: 20200501

REACTIONS (1)
  - Hepatic enzyme increased [Unknown]
